FAERS Safety Report 5748096-9 (Version None)
Quarter: 2008Q2

REPORT INFORMATION
  Report Type: 
  Country: None (occurrence: None)
  Receive Date: 20080521
  Receipt Date: 20080513
  Transmission Date: 20081010
  Serious: Yes (Hospitalization)
  Sender: FDA-Public Use
  Company Number: 2008BI012454

PATIENT
  Age: 53 Year
  Sex: Female

DRUGS (2)
  1. AVONEX [Suspect]
     Indication: MULTIPLE SCLEROSIS
     Dosage: 30 UG;QW;IM
     Route: 030
     Dates: start: 20010420
  2. STEROIDS [Concomitant]

REACTIONS (2)
  - IMMUNE SYSTEM DISORDER [None]
  - PULMONARY OEDEMA [None]
